FAERS Safety Report 12763148 (Version 2)
Quarter: 2016Q3

REPORT INFORMATION
  Report Type: Spontaneous
  Country: US (occurrence: US)
  Receive Date: 20160920
  Receipt Date: 20160927
  Transmission Date: 20161109
  Serious: Yes (Death, Hospitalization)
  Sender: FDA-Public Use
  Company Number: US-JNJFOC-20160916336

PATIENT
  Sex: Male
  Weight: 88 kg

DRUGS (1)
  1. XARELTO [Suspect]
     Active Substance: RIVAROXABAN
     Indication: PRODUCT USED FOR UNKNOWN INDICATION
     Route: 048
     Dates: end: 2016

REACTIONS (4)
  - Haemorrhage [Unknown]
  - Cerebrovascular accident [Unknown]
  - Contusion [Unknown]
  - Death [Fatal]

NARRATIVE: CASE EVENT DATE: 2016
